FAERS Safety Report 5340921-9 (Version None)
Quarter: 2007Q2

REPORT INFORMATION
  Report Type: 
  Country: None (occurrence: None)
  Receive Date: 20070531
  Receipt Date: 20070530
  Transmission Date: 20071010
  Serious: Yes (Other)
  Sender: FDA-Public Use
  Company Number: BE-MERCK-0705BEL00017

PATIENT
  Age: 74 Year
  Sex: Female
  Weight: 95 kg

DRUGS (5)
  1. ZOCOR [Suspect]
     Indication: HYPERCHOLESTEROLAEMIA
     Route: 048
     Dates: start: 20050311
  2. FUROSEMIDE SODIUM [Concomitant]
     Indication: HYPERTENSION
     Route: 048
  3. HYDROCHLOROTHIAZIDE AND QUINAPRIL HYDROCHLORIDE [Concomitant]
     Indication: HYPERTENSION
     Route: 048
  4. TELMISARTAN [Concomitant]
     Indication: HYPERTENSION
     Route: 048
  5. ACENOCOUMAROL [Concomitant]
     Indication: PROPHYLAXIS
     Route: 048

REACTIONS (1)
  - ATRIAL FIBRILLATION [None]
